FAERS Safety Report 7012181-4 (Version None)
Quarter: 2010Q3

REPORT INFORMATION
  Report Type: 
  Country: None (occurrence: None)
  Receive Date: 20100924
  Receipt Date: 20100917
  Transmission Date: 20110219
  Serious: Yes (Hospitalization, Other)
  Sender: FDA-Public Use
  Company Number: US-JNJFOC-20100704229

PATIENT
  Sex: Male

DRUGS (2)
  1. LEVAQUIN [Suspect]
     Indication: INFECTION
     Route: 048
  2. LEVAQUIN [Suspect]
     Indication: INFLAMMATION
     Route: 048

REACTIONS (6)
  - ANXIETY [None]
  - ARTHRALGIA [None]
  - DECREASED APPETITE [None]
  - DEPRESSION [None]
  - RHEUMATOID ARTHRITIS [None]
  - TENDONITIS [None]
